FAERS Safety Report 15563152 (Version 2)
Quarter: 2018Q4

REPORT INFORMATION
  Report Type: Spontaneous
  Country: DE (occurrence: DE)
  Receive Date: 20181029
  Receipt Date: 20181109
  Transmission Date: 20190205
  Serious: Yes (Hospitalization, Other)
  Sender: FDA-Public Use
  Company Number: DE-009507513-1809DEU001716

PATIENT
  Sex: Female

DRUGS (2)
  1. KEYTRUDA [Suspect]
     Active Substance: PEMBROLIZUMAB
     Dosage: 116 MILLIGRAM, Q3W
     Dates: start: 20180918
  2. KEYTRUDA [Suspect]
     Active Substance: PEMBROLIZUMAB
     Indication: METASTATIC MALIGNANT MELANOMA
     Dosage: 116 MILLIGRAM, EVERY 3 WEEKS
     Dates: start: 201610, end: 201809

REACTIONS (18)
  - Hypoacusis [Recovering/Resolving]
  - Constipation [Recovering/Resolving]
  - Rash erythematous [Unknown]
  - Skin ulcer [Unknown]
  - Headache [Recovering/Resolving]
  - Sleep disorder [Recovering/Resolving]
  - Facial paresis [Recovering/Resolving]
  - Dizziness [Recovering/Resolving]
  - Meningitis viral [Recovering/Resolving]
  - Lagophthalmos [Recovering/Resolving]
  - Fall [Recovered/Resolved]
  - Blister [Unknown]
  - Varicella zoster virus infection [Recovering/Resolving]
  - Neck pain [Recovering/Resolving]
  - Facial pain [Recovering/Resolving]
  - Anxiety [Recovering/Resolving]
  - Hypokalaemia [Recovering/Resolving]
  - Malignant neoplasm progression [Unknown]

NARRATIVE: CASE EVENT DATE: 201610
